FAERS Safety Report 8488631-3 (Version None)
Quarter: 2012Q3

REPORT INFORMATION
  Report Type: 
  Country: None (occurrence: None)
  Receive Date: 20120705
  Receipt Date: 20120702
  Transmission Date: 20120928
  Serious: Yes (Death)
  Sender: FDA-Public Use
  Company Number: PHHY2012IT053634

PATIENT
  Sex: Female
  Weight: 61 kg

DRUGS (1)
  1. CERTICAN [Suspect]
     Dosage: UNK UKN, UNK

REACTIONS (1)
  - LUNG NEOPLASM MALIGNANT [None]
